FAERS Safety Report 25249859 (Version 1)
Quarter: 2025Q2

REPORT INFORMATION
  Report Type: Other
  Country: NL (occurrence: NL)
  Receive Date: 20250429
  Receipt Date: 20250429
  Transmission Date: 20250717
  Serious: Yes (Death, Hospitalization, Other)
  Sender: ANI
  Company Number: NL-ANIPHARMA-022507

PATIENT
  Age: 23 Year
  Sex: Male

DRUGS (4)
  1. OXYCODONE [Suspect]
     Active Substance: OXYCODONE
     Indication: Product used for unknown indication
  2. COCAINE [Concomitant]
     Active Substance: COCAINE
     Indication: Product used for unknown indication
  3. QUETIAPINE [Concomitant]
     Active Substance: QUETIAPINE
     Indication: Product used for unknown indication
  4. 3-METHYLMETHCATHINONE [Concomitant]
     Active Substance: 3-METHYLMETHCATHINONE
     Indication: Product used for unknown indication

REACTIONS (11)
  - Toxic leukoencephalopathy [Fatal]
  - Acute kidney injury [Unknown]
  - Hyperkalaemia [Unknown]
  - Rhabdomyolysis [Unknown]
  - Hyperlactacidaemia [Unknown]
  - Coma [Unknown]
  - Shock [Unknown]
  - Hepatic failure [Unknown]
  - Renal failure [Unknown]
  - Drug abuse [Unknown]
  - Overdose [Unknown]
